FAERS Safety Report 5768853-2 (Version None)
Quarter: 2008Q2

REPORT INFORMATION
  Report Type: 
  Country: None (occurrence: None)
  Receive Date: 20080612
  Receipt Date: 20080312
  Transmission Date: 20081010
  Serious: No
  Sender: FDA-Public Use
  Company Number: US-ABBOTT-08P-163-0442370-00

PATIENT
  Sex: Female

DRUGS (2)
  1. HUMIRA [Suspect]
     Indication: PSORIATIC ARTHROPATHY
     Route: 058
     Dates: start: 20080204
  2. HUMIRA [Suspect]
     Indication: PSORIASIS

REACTIONS (5)
  - FATIGUE [None]
  - HYPOTENSION [None]
  - INCREASED TENDENCY TO BRUISE [None]
  - NAUSEA [None]
  - VOMITING [None]
